FAERS Safety Report 21633303 (Version 1)
Quarter: 2022Q4

REPORT INFORMATION
  Report Type: Spontaneous
  Country: US (occurrence: None)
  Receive Date: 20221122
  Receipt Date: 20221122
  Transmission Date: 20230113
  Serious: No
  Sender: FDA-Public Use
  Company Number: None

PATIENT
  Age: 71 Year
  Sex: Male
  Weight: 89.1 kg

DRUGS (8)
  1. BRIMONIDINE TARTRATE [Suspect]
     Active Substance: BRIMONIDINE TARTRATE
     Indication: Ocular hypertension
     Dosage: FREQUENCY : TWICE A DAY;?
     Route: 047
     Dates: start: 20221112, end: 20221112
  2. bimataprost [Concomitant]
  3. VALSARTAN [Concomitant]
     Active Substance: VALSARTAN
  4. CHLORTHALIDONE [Concomitant]
     Active Substance: CHLORTHALIDONE
  5. KLOR-CON [Concomitant]
     Active Substance: POTASSIUM CHLORIDE
  6. PRAVASTATIN [Concomitant]
     Active Substance: PRAVASTATIN
  7. albuterol inhale [Concomitant]
  8. MINERALS\VITAMINS [Concomitant]
     Active Substance: MINERALS\VITAMINS

REACTIONS (4)
  - Eye pain [None]
  - Eye irritation [None]
  - Eyelid irritation [None]
  - Vision blurred [None]

NARRATIVE: CASE EVENT DATE: 20221112
